FAERS Safety Report 8946897 (Version 1)
Quarter: 2012Q4

REPORT INFORMATION
  Report Type: 
  Country: CA (occurrence: CA)
  Receive Date: 20121205
  Receipt Date: 20121205
  Transmission Date: 20130627
  Serious: Yes (Other)
  Sender: FDA-Public Use
  Company Number: CHPA2012CA024182

PATIENT
  Sex: Female

DRUGS (2)
  1. THRIVE [Suspect]
     Indication: SMOKING CESSATION THERAPY
     Dosage: 2 mg, Unk
     Route: 048
     Dates: start: 20121109, end: 20121112
  2. HABITROL [Suspect]
     Indication: SMOKING CESSATION THERAPY
     Dosage: Unk, Unk
     Route: 062
     Dates: start: 201208, end: 20121109

REACTIONS (5)
  - Herpes zoster [Not Recovered/Not Resolved]
  - Stomatitis [Recovered/Resolved]
  - Oral discomfort [Unknown]
  - Overdose [Unknown]
  - Treatment noncompliance [Unknown]
